FAERS Safety Report 24811429 (Version 1)
Quarter: 2025Q1

REPORT INFORMATION
  Report Type: Spontaneous
  Country: US (occurrence: None)
  Receive Date: 20250105
  Receipt Date: 20250105
  Transmission Date: 20250408
  Serious: Yes (Life-Threatening, Disabling)
  Sender: FDA-CTU
  Company Number: None

PATIENT
  Age: 36 Year
  Sex: Female
  Weight: 49.5 kg

DRUGS (2)
  1. SPEVIGO [Suspect]
     Active Substance: SPESOLIMAB-SBZO
     Indication: Pustular psoriasis
     Dates: start: 20231212, end: 20231218
  2. women^s daily multivitamin [Concomitant]

REACTIONS (14)
  - Rash [None]
  - Headache [None]
  - Staphylococcal infection [None]
  - Skin disorder [None]
  - Skin disorder [None]
  - Rash pustular [None]
  - Discomfort [None]
  - Infestation [None]
  - Fear [None]
  - Infection [None]
  - Disease progression [None]
  - Drug ineffective [None]
  - Amenorrhoea [None]
  - Nonspecific reaction [None]

NARRATIVE: CASE EVENT DATE: 20240118
